FAERS Safety Report 9190321 (Version 1)
Quarter: 2013Q1

REPORT INFORMATION
  Report Type: Spontaneous
  Country: US (occurrence: US)
  Receive Date: 20130326
  Receipt Date: 20130326
  Transmission Date: 20140127
  Serious: No
  Sender: FDA-Public Use
  Company Number: US-PFIZER INC-2013096359

PATIENT
  Age: 66 Year
  Sex: Female
  Weight: 77.1 kg

DRUGS (7)
  1. LYRICA [Suspect]
     Dosage: 75 MG, 1X/DAY
     Route: 048
     Dates: start: 2008
  2. LYRICA [Suspect]
     Dosage: 50 MG, 1X/DAY
     Route: 048
  3. LYRICA [Suspect]
     Dosage: 75 MG, 1X/DAY
     Route: 048
  4. LYRICA [Suspect]
     Dosage: 50 MG, 1X/DAY
     Route: 048
  5. LYRICA [Suspect]
     Dosage: 50 MG ONCE EVERY OTHER DAY
     Route: 048
     Dates: end: 201303
  6. ADVAIR [Concomitant]
     Dosage: UNK
  7. FLECAINIDE [Concomitant]
     Indication: ATRIAL FIBRILLATION
     Dosage: UNK

REACTIONS (7)
  - Pain [Unknown]
  - Somnolence [Unknown]
  - Drug intolerance [Unknown]
  - Nausea [Unknown]
  - Asthenia [Unknown]
  - Fatigue [Unknown]
  - Influenza like illness [Unknown]
